FAERS Safety Report 17750188 (Version 1)
Quarter: 2020Q2

REPORT INFORMATION
  Report Type: Spontaneous
  Country: US (occurrence: US)
  Receive Date: 20200505
  Receipt Date: 20200505
  Transmission Date: 20200714
  Serious: No
  Sender: FDA-Public Use
  Company Number: None

PATIENT
  Age: 66 Year
  Sex: Female
  Weight: 49.95 kg

DRUGS (13)
  1. EXCEDRIN MIGRAINE [Concomitant]
     Active Substance: ACETAMINOPHEN\ASPIRIN\CAFFEINE
  2. TRAMADOL 50MG [Concomitant]
     Active Substance: TRAMADOL
  3. CALTRATE 600 +D3 [Concomitant]
  4. OMEPRAZOLE 20MG [Concomitant]
     Active Substance: OMEPRAZOLE
  5. IBUPROFEN 100MG [Concomitant]
  6. VITAMIN D 1.25MG [Concomitant]
  7. ASPIRIN 325MG [Concomitant]
     Active Substance: ASPIRIN
  8. PIQRAY [Suspect]
     Active Substance: ALPELISIB
     Indication: BREAST CANCER
     Route: 048
     Dates: start: 20200123
  9. GABAPENTIN 300MG [Concomitant]
     Active Substance: GABAPENTIN
  10. MULTIVITAMIN [Concomitant]
     Active Substance: VITAMINS
  11. ALDACTONE [Concomitant]
     Active Substance: SPIRONOLACTONE
  12. LACTULOSE. [Concomitant]
     Active Substance: LACTULOSE
  13. REGLAN 5MG [Concomitant]

REACTIONS (1)
  - Rash [None]

NARRATIVE: CASE EVENT DATE: 20200505
